FAERS Safety Report 8520229-0 (Version None)
Quarter: 2012Q3

REPORT INFORMATION
  Report Type: 
  Country: None (occurrence: None)
  Receive Date: 20120719
  Receipt Date: 20120710
  Transmission Date: 20120928
  Serious: Yes (Other)
  Sender: FDA-Public Use
  Company Number: GR-JNJFOC-20120705279

PATIENT
  Sex: Male

DRUGS (2)
  1. STELARA [Suspect]
     Indication: PSORIASIS
     Route: 058
  2. CYCLOSPORINE [Concomitant]
     Indication: PSORIASIS
     Route: 065

REACTIONS (1)
  - HEPATITIS B VIRUS TEST POSITIVE [None]
